FAERS Safety Report 8224773-5 (Version None)
Quarter: 2012Q1

REPORT INFORMATION
  Report Type: 
  Country: None (occurrence: None)
  Receive Date: 20120321
  Receipt Date: 20120311
  Transmission Date: 20120608
  Serious: Yes (Life-Threatening, Hospitalization)
  Sender: FDA-Public Use
  Company Number: ZA-ABBOTT-11P-143-0857831-00

PATIENT

DRUGS (15)
  1. TRUVADA [Concomitant]
     Indication: HIV INFECTION
     Dates: start: 20100730
  2. ESCITALOPRAM [Concomitant]
     Indication: DEPRESSION
     Dates: start: 20100318
  3. OMEPRAZOLE [Concomitant]
     Indication: PRODUCT USED FOR UNKNOWN INDICATION
     Route: 048
  4. DS-24 [Concomitant]
     Indication: VITAMIN SUPPLEMENTATION
     Dosage: 1 TAB
     Dates: start: 20081001
  5. ALBUTEROL [Concomitant]
     Indication: ASTHMA
     Dosage: 2 PUFF
     Dates: start: 19870101
  6. VIT B 12, FE FUMARATE, VIT C, FOLIC ACID [Concomitant]
     Indication: PROPHYLAXIS
     Dates: start: 20100401
  7. MULTI-VITAMIN [Concomitant]
     Indication: VITAMIN SUPPLEMENTATION
     Dates: start: 20081001
  8. SYNALONE [Concomitant]
     Indication: PRODUCT USED FOR UNKNOWN INDICATION
     Dosage: 2 TAB EVERY 8 HOURS
     Route: 048
  9. AUTRIN [Concomitant]
     Indication: PROPHYLAXIS
     Dosage: 1 TAB
     Dates: start: 20100401
  10. FYBOGEL [Concomitant]
     Indication: PRODUCT USED FOR UNKNOWN INDICATION
     Dosage: AT NIGHT
     Route: 048
  11. TRIMETHOPRIM [Concomitant]
     Indication: PROPHYLAXIS
     Dosage: 1 TAB
     Dates: start: 20081001
  12. LOPINAVIR/RITONAVIR [Suspect]
     Indication: HIV INFECTION
     Route: 048
     Dates: start: 20100730
  13. PURBAC DS [Concomitant]
     Indication: PROPHYLAXIS
     Dosage: 1 TAB
     Dates: start: 20081001
  14. DEPO-PROVERA [Concomitant]
     Indication: CONTRACEPTION
     Dates: start: 20100730
  15. SYMBICORT [Concomitant]
     Indication: PRODUCT USED FOR UNKNOWN INDICATION
     Dosage: 1 PUFF BID

REACTIONS (2)
  - ASTHMA [None]
  - ABDOMINAL PAIN [None]
